FAERS Safety Report 15402503 (Version 1)
Quarter: 2018Q3

REPORT INFORMATION
  Report Type: Spontaneous
  Country: US (occurrence: US)
  Receive Date: 20180916
  Receipt Date: 20180916
  Transmission Date: 20181010
  Serious: Yes (Disabling)
  Sender: FDA-Public Use
  Company Number: None

PATIENT
  Age: 44 Year
  Sex: Female
  Weight: 57.6 kg

DRUGS (1)
  1. CIPRO [Suspect]
     Active Substance: CIPROFLOXACIN HYDROCHLORIDE
     Indication: INFECTION
     Route: 048
     Dates: start: 20170401, end: 20170410

REACTIONS (4)
  - Arthralgia [None]
  - Pain [None]
  - Paraesthesia [None]
  - Hypoaesthesia [None]

NARRATIVE: CASE EVENT DATE: 20170714
